FAERS Safety Report 8532961-3 (Version None)
Quarter: 2012Q3

REPORT INFORMATION
  Report Type: 
  Country: None (occurrence: None)
  Receive Date: 20120724
  Receipt Date: 20120716
  Transmission Date: 20120928
  Serious: Yes (Other)
  Sender: FDA-Public Use
  Company Number: CA-JNJFOC-20120707722

PATIENT
  Sex: Female
  Weight: 97 kg

DRUGS (4)
  1. ASACOL [Concomitant]
     Dosage: 1.6 GM (ALSO REPORTED AS MG)
     Route: 048
  2. MESALAMINE [Concomitant]
     Route: 065
  3. CITALOPRAM [Concomitant]
     Route: 065
  4. REMICADE [Suspect]
     Indication: COLITIS ULCERATIVE
     Route: 042
     Dates: start: 20111216

REACTIONS (1)
  - IRITIS [None]
